FAERS Safety Report 11642333 (Version 1)
Quarter: 2015Q4

REPORT INFORMATION
  Report Type: Spontaneous
  Country: US (occurrence: US)
  Receive Date: 20151019
  Receipt Date: 20151019
  Transmission Date: 20160304
  Serious: Yes (Other)
  Sender: FDA-Public Use
  Company Number: US-ACTELION-A-NJ2015-125569

PATIENT
  Age: 72 Year
  Sex: Female

DRUGS (1)
  1. TRACLEER [Suspect]
     Active Substance: BOSENTAN
     Indication: PULMONARY ARTERIAL HYPERTENSION
     Dosage: UNK
     Route: 048

REACTIONS (7)
  - White blood cell count decreased [Unknown]
  - Red blood cell count decreased [Unknown]
  - Anaemia [Unknown]
  - Leukopenia [Unknown]
  - Infection [Not Recovered/Not Resolved]
  - Neutropenia [Unknown]
  - Transfusion [Unknown]
